FAERS Safety Report 7966979-6 (Version None)
Quarter: 2011Q4

REPORT INFORMATION
  Report Type: 
  Country: None (occurrence: None)
  Receive Date: 20111209
  Receipt Date: 20111129
  Transmission Date: 20120403
  Serious: Yes (Other)
  Sender: FDA-Public Use
  Company Number: AU-JNJFOC-20111111786

PATIENT
  Sex: Female

DRUGS (6)
  1. PHENERGAN [Concomitant]
     Indication: PREMEDICATION
     Route: 048
  2. ACETAMINOPHEN [Concomitant]
     Indication: PREMEDICATION
     Route: 065
  3. PREDNISOLONE [Concomitant]
     Indication: PREMEDICATION
     Dosage: FOR 5 DAYS
     Route: 048
  4. REMICADE [Suspect]
     Indication: CROHN'S DISEASE
     Route: 042
     Dates: start: 20111128
  5. REMICADE [Suspect]
     Route: 042
     Dates: start: 20070101
  6. HYDROCORTISONE [Concomitant]
     Indication: PREMEDICATION
     Route: 042

REACTIONS (6)
  - PRURITUS [None]
  - FISTULA [None]
  - HYPOTENSION [None]
  - INFUSION RELATED REACTION [None]
  - PALPITATIONS [None]
  - OEDEMA PERIPHERAL [None]
